FAERS Safety Report 17139731 (Version 1)
Quarter: 2019Q4

REPORT INFORMATION
  Report Type: Spontaneous
  Country: SE (occurrence: SE)
  Receive Date: 20191211
  Receipt Date: 20191211
  Transmission Date: 20200122
  Serious: Yes (Hospitalization)
  Sender: FDA-Public Use
  Company Number: SE-TEVA-2019-SE-1149127

PATIENT
  Age: 44 Year
  Sex: Female

DRUGS (9)
  1. LERGIGAN [PROMETHAZINE HYDROCHLORIDE] [Suspect]
     Active Substance: PROMETHAZINE HYDROCHLORIDE
     Dosage: 900 MG
     Route: 048
     Dates: start: 20180928, end: 20180928
  2. IMDUR [Suspect]
     Active Substance: ISOSORBIDE MONONITRATE
     Dosage: 180 MG
     Route: 048
     Dates: start: 20180928, end: 20180928
  3. PROPAVAN [Suspect]
     Active Substance: PROPIOMAZINE
     Dosage: 150 MG
     Route: 048
     Dates: start: 20180928, end: 20180928
  4. LEVAXIN [Suspect]
     Active Substance: LEVOTHYROXINE SODIUM
     Dosage: 300 MG
     Route: 048
     Dates: start: 20180928, end: 20180928
  5. TRUXAL [Suspect]
     Active Substance: CHLORPROTHIXENE
     Dosage: 450 MG
     Route: 048
     Dates: start: 20180928, end: 20180928
  6. IMPUGAN [Suspect]
     Active Substance: FUROSEMIDE
     Dosage: 480 MG
     Route: 048
     Dates: start: 20180928, end: 20180928
  7. ARITAVI [Suspect]
     Active Substance: DULOXETINE HYDROCHLORIDE
     Dosage: 540 MG
     Route: 048
     Dates: start: 20180928, end: 20180928
  8. LAMOTRIGINE. [Suspect]
     Active Substance: LAMOTRIGINE
     Dosage: 1.2 G
     Route: 048
     Dates: start: 20180928, end: 20180928
  9. PARAFLEX [Suspect]
     Active Substance: CHLORZOXAZONE
     Dosage: 6 G
     Route: 048
     Dates: start: 20180928, end: 20180928

REACTIONS (3)
  - Intentional overdose [Unknown]
  - Intentional self-injury [Unknown]
  - Fatigue [Unknown]

NARRATIVE: CASE EVENT DATE: 20180928
